FAERS Safety Report 11899022 (Version 10)
Quarter: 2016Q4

REPORT INFORMATION
  Report Type: Spontaneous
  Country: US (occurrence: US)
  Receive Date: 20160108
  Receipt Date: 20161208
  Transmission Date: 20170206
  Serious: Yes (Hospitalization, Other)
  Sender: FDA-Public Use
  Company Number: US-PFIZER INC-2015465680

PATIENT
  Age: 75 Year
  Sex: Male
  Weight: 65.76 kg

DRUGS (5)
  1. SUTENT [Suspect]
     Active Substance: SUNITINIB MALATE
     Dosage: 50 MG, CYCLIC (DAYS 1-28 Q 42 DAYS)
     Route: 048
     Dates: start: 20150901
  2. SUTENT [Suspect]
     Active Substance: SUNITINIB MALATE
     Dosage: 50 MG, CYCLIC (1D-28 D Q 42D)
     Route: 048
     Dates: start: 20150910, end: 20161129
  3. SUTENT [Suspect]
     Active Substance: SUNITINIB MALATE
     Dosage: 50 MG, CYCLIC DAILY (D1-28Q42)
     Route: 048
     Dates: start: 20150910
  4. SUTENT [Suspect]
     Active Substance: SUNITINIB MALATE
     Dosage: UNK
  5. SUTENT [Suspect]
     Active Substance: SUNITINIB MALATE
     Indication: GASTROINTESTINAL STROMAL TUMOUR
     Dosage: 50 MG, CYCLIC (DAY 1-28 Q 42 DAYS)
     Route: 048
     Dates: start: 20150901

REACTIONS (15)
  - Hypertension [Unknown]
  - Neoplasm progression [Unknown]
  - Diarrhoea [Recovered/Resolved]
  - Rash macular [Unknown]
  - Abdominal pain [Unknown]
  - Abdominal pain upper [Not Recovered/Not Resolved]
  - Gait disturbance [Unknown]
  - Abdominal pain upper [Unknown]
  - Fatigue [Unknown]
  - Vomiting [Unknown]
  - Skin discolouration [Unknown]
  - Dry skin [Unknown]
  - Erythema [Unknown]
  - Nausea [Unknown]
  - Dizziness [Unknown]

NARRATIVE: CASE EVENT DATE: 20160120
